FAERS Safety Report 7276106-9 (Version None)
Quarter: 2011Q1

REPORT INFORMATION
  Report Type: 
  Country: None (occurrence: None)
  Receive Date: 20110204
  Receipt Date: 20110125
  Transmission Date: 20110831
  Serious: Yes (Hospitalization)
  Sender: FDA-Public Use
  Company Number: US-ASTRAZENECA-2010SE54921

PATIENT
  Age: 804 Month
  Sex: Male

DRUGS (12)
  1. SYMBICORT [Suspect]
     Dosage: 80/4.5 UG 2 PUFFS BID
     Route: 055
     Dates: start: 20090101
  2. SERTRALINE [Concomitant]
  3. LORAZEPAM [Concomitant]
  4. HEART MEDICINES [Concomitant]
  5. RESCUE INHALER [Concomitant]
  6. ZEMPLAR [Concomitant]
  7. PANTOPRAZOLE [Concomitant]
  8. METOPROLOL TARTRATE [Concomitant]
  9. MIRAPEX [Concomitant]
  10. WARFARIN [Concomitant]
  11. SPIRIVA [Concomitant]
  12. PRAVASTATIN [Concomitant]

REACTIONS (4)
  - PULMONARY EMBOLISM [None]
  - ADVERSE EVENT [None]
  - DYSPNOEA [None]
  - DRUG DOSE OMISSION [None]
